FAERS Safety Report 9614401 (Version 2)
Quarter: 2014Q1

REPORT INFORMATION
  Report Type: Spontaneous
  Country: JP (occurrence: JP)
  Receive Date: 20131011
  Receipt Date: 20140124
  Transmission Date: 20141002
  Serious: Yes (Life-Threatening, Hospitalization)
  Sender: FDA-Public Use
  Company Number: JP-ASTRAZENECA-2013SE75017

PATIENT
  Age: 79 Year
  Sex: Male

DRUGS (12)
  1. MEROPEN [Suspect]
     Indication: PNEUMONIA
     Route: 042
     Dates: start: 20130625, end: 20130625
  2. MEROPEN [Suspect]
     Indication: PNEUMONIA
     Route: 042
     Dates: start: 20130625, end: 20130625
  3. SOLITA-T NO3 [Concomitant]
     Route: 042
  4. BLOPRESS [Concomitant]
     Route: 048
  5. ALOSITOL [Concomitant]
     Route: 048
  6. METHYCOBAL [Concomitant]
     Route: 048
  7. OPALMON [Concomitant]
     Indication: BACK PAIN
     Route: 048
  8. MUCOSTA [Concomitant]
     Route: 048
  9. BIOFERMIN R [Concomitant]
     Route: 048
  10. TALION OD [Concomitant]
     Route: 048
  11. CALONAL [Concomitant]
     Route: 048
  12. ROCEPHIN [Concomitant]
     Indication: PNEUMONIA
     Dates: start: 20130625

REACTIONS (3)
  - Peripheral arterial occlusive disease [Recovered/Resolved]
  - Shock [Recovered/Resolved]
  - Drug hypersensitivity [Unknown]
